FAERS Safety Report 9023939 (Version 2)
Quarter: 2013Q2

REPORT INFORMATION
  Report Type: Spontaneous
  Country: US (occurrence: US)
  Receive Date: 20130121
  Receipt Date: 20130620
  Transmission Date: 20140414
  Serious: No
  Sender: FDA-Public Use
  Company Number: US-PFIZER INC-2013019820

PATIENT
  Age: 65 Year
  Sex: Male

DRUGS (2)
  1. XALKORI [Suspect]
     Indication: LUNG NEOPLASM MALIGNANT
     Dosage: 250 MG, 1X/DAY
     Route: 048
     Dates: start: 20111123
  2. XALKORI [Suspect]
     Indication: METASTASES TO LUNG
     Dosage: 250 MG, 1X/DAY
     Route: 048
     Dates: start: 20120517, end: 201303

REACTIONS (5)
  - Visual impairment [Unknown]
  - Vision blurred [Unknown]
  - Diplopia [Unknown]
  - Oedema peripheral [Unknown]
  - Dizziness [Unknown]
